FAERS Safety Report 9053696 (Version 1)
Quarter: 2013Q1

REPORT INFORMATION
  Report Type: Spontaneous
  Country: US (occurrence: None)
  Receive Date: 20130201
  Receipt Date: 20130201
  Transmission Date: 20140127
  Serious: Yes (Hospitalization, Other)
  Sender: FDA-Public Use
  Company Number: None

PATIENT
  Age: 21 Year
  Sex: Female
  Weight: 58.97 kg

DRUGS (1)
  1. MIRENA [Suspect]
     Dates: start: 20121120

REACTIONS (7)
  - Device dislocation [None]
  - Pelvic pain [None]
  - Loss of employment [None]
  - Haemorrhage [None]
  - Muscle spasms [None]
  - Vomiting [None]
  - Ovarian cyst [None]
